FAERS Safety Report 7272347-5 (Version None)
Quarter: 2011Q1

REPORT INFORMATION
  Report Type: 
  Country: None (occurrence: None)
  Receive Date: 20110203
  Receipt Date: 20110128
  Transmission Date: 20110831
  Serious: Yes (Hospitalization)
  Sender: FDA-Public Use
  Company Number: PHHY2010CA78576

PATIENT
  Sex: Female

DRUGS (4)
  1. HYZAAR [Concomitant]
  2. CALCIUM [Concomitant]
  3. ACLASTA [Suspect]
     Indication: OSTEOPOROSIS
     Dosage: UNK
     Dates: start: 20100216
  4. NEXIUM [Concomitant]

REACTIONS (1)
  - FALL [None]
